FAERS Safety Report 10847088 (Version 1)
Quarter: 2015Q1

REPORT INFORMATION
  Report Type: Report from Study
  Country: VE (occurrence: VE)
  Receive Date: 20150220
  Receipt Date: 20150220
  Transmission Date: 20150721
  Serious: Yes (Other)
  Sender: FDA-Public Use
  Company Number: PHHY2015VE020736

PATIENT
  Sex: Female

DRUGS (3)
  1. BONAMES [Concomitant]
     Indication: OSTEOPOROSIS
     Dosage: 150 MG, QMO (1 DF)
     Route: 065
  2. ACLASTA [Suspect]
     Active Substance: ZOLEDRONIC ACID
     Indication: OSTEOPOROSIS
     Dosage: 5 MG, ANNUAL
     Route: 042
     Dates: start: 20130313
  3. SIMPLA [Concomitant]
     Indication: OSTEOPOROSIS
     Dosage: 150 MG, QMO (1 DF)
     Route: 065

REACTIONS (1)
  - Odontogenic cyst [Recovering/Resolving]
